FAERS Safety Report 5373738-X (Version None)
Quarter: 2007Q2

REPORT INFORMATION
  Report Type: 
  Country: None (occurrence: None)
  Receive Date: 20070628
  Receipt Date: 20070612
  Transmission Date: 20071010
  Serious: Yes (Disabling, Other)
  Sender: FDA-Public Use
  Company Number: DK-SHR-DK-2007-022790

PATIENT
  Age: 16 Year
  Sex: Female
  Weight: 54 kg

DRUGS (1)
  1. YASMIN [Suspect]
     Indication: ORAL CONTRACEPTION
     Dosage: 1 TAB(S), 21D/28D
     Route: 048
     Dates: start: 20070101, end: 20070601

REACTIONS (7)
  - BLISTER [None]
  - DERMATITIS BULLOUS [None]
  - ERYTHEMA NODOSUM [None]
  - HERPES DERMATITIS [None]
  - NEUTROPHIL COUNT INCREASED [None]
  - PAIN IN EXTREMITY [None]
  - WHITE BLOOD CELL COUNT INCREASED [None]
